FAERS Safety Report 15532602 (Version 1)
Quarter: 2018Q4

REPORT INFORMATION
  Report Type: Spontaneous
  Country: BG (occurrence: BG)
  Receive Date: 20181019
  Receipt Date: 20181019
  Transmission Date: 20190205
  Serious: Yes (Hospitalization, Other)
  Sender: FDA-Public Use
  Company Number: BG-ASTRAZENECA-2018SF35968

PATIENT
  Age: 30 Year
  Sex: Male

DRUGS (2)
  1. BRONCHODILATOR [Concomitant]
     Active Substance: UNSPECIFIED INGREDIENT
     Indication: ASTHMA
     Dosage: UNKNOWN DOSE, ON DEMAND
  2. BUDESONIDE. [Suspect]
     Active Substance: BUDESONIDE
     Indication: ASTHMA
     Route: 055

REACTIONS (11)
  - Tachycardia [Recovered/Resolved]
  - Dyspnoea [Unknown]
  - Breath sounds abnormal [Unknown]
  - Productive cough [Recovered/Resolved]
  - General physical health deterioration [Unknown]
  - Cyanosis [Recovered/Resolved]
  - Use of accessory respiratory muscles [Unknown]
  - Prolonged expiration [Unknown]
  - Wheezing [Unknown]
  - Tachypnoea [Recovered/Resolved]
  - Drug ineffective [Unknown]

NARRATIVE: CASE EVENT DATE: 201810
